FAERS Safety Report 5788480-0 (Version None)
Quarter: 2008Q2

REPORT INFORMATION
  Report Type: 
  Country: None (occurrence: None)
  Receive Date: 20080625
  Receipt Date: 20080625
  Transmission Date: 20081010
  Serious: Yes (Other)
  Sender: FDA-Public Use
  Company Number: None

PATIENT
  Sex: Female
  Weight: 73.9363 kg

DRUGS (1)
  1. CHORIONIC GONADOTROPIN 10,000 USP UNITS, ABRAXIS [Suspect]
     Indication: IN VITRO FERTILISATION
     Dosage: 5,000 UNITS X1 6/15/08 2100 SUBCUTANEO
     Route: 058
     Dates: start: 20080615

REACTIONS (1)
  - PHARMACEUTICAL PRODUCT COMPLAINT [None]
